FAERS Safety Report 7705699-X (Version None)
Quarter: 2011Q3

REPORT INFORMATION
  Report Type: 
  Country: None (occurrence: None)
  Receive Date: 20110824
  Receipt Date: 20100923
  Transmission Date: 20111222
  Serious: No
  Sender: FDA-Public Use
  Company Number: US-MYLANLABS-2010S1017550

PATIENT
  Age: 89 Year
  Sex: Female

DRUGS (1)
  1. PENTOXIFYLLINE [Suspect]
     Indication: LIMB DISCOMFORT
     Route: 048
     Dates: start: 20100921, end: 20100921

REACTIONS (5)
  - ASTHENIA [None]
  - HYPERHIDROSIS [None]
  - EYE IRRITATION [None]
  - HEADACHE [None]
  - EYE PRURITUS [None]
